FAERS Safety Report 9742692 (Version 2)
Quarter: 2015Q3

REPORT INFORMATION
  Report Type: Spontaneous
  Country: US (occurrence: US)
  Receive Date: 20131210
  Receipt Date: 20150805
  Transmission Date: 20151125
  Serious: No
  Sender: FDA-Public Use
  Company Number: US-GILEAD-2009-0025716

PATIENT
  Age: 63 Year
  Sex: Female
  Weight: 72.57 kg

DRUGS (15)
  1. PARACETAMOL/HYDROCODONE BITARTRATE [Concomitant]
  2. LETAIRIS [Suspect]
     Active Substance: AMBRISENTAN
     Indication: PULMONARY ARTERIAL HYPERTENSION
     Route: 048
     Dates: start: 20091007
  3. ALPHAGAN P [Concomitant]
     Active Substance: BRIMONIDINE TARTRATE
  4. FOSAMAX [Concomitant]
     Active Substance: ALENDRONATE SODIUM
  5. SOMA [Concomitant]
     Active Substance: CARISOPRODOL
  6. ESTRADIOL. [Concomitant]
     Active Substance: ESTRADIOL
  7. PREDNISONE. [Concomitant]
     Active Substance: PREDNISONE
  8. LOTEMAX [Concomitant]
     Active Substance: LOTEPREDNOL ETABONATE
  9. AMARYL [Concomitant]
     Active Substance: GLIMEPIRIDE
  10. DIOVAN [Concomitant]
     Active Substance: VALSARTAN
  11. IMURAN [Concomitant]
     Active Substance: AZATHIOPRINE
  12. METFORMIN [Concomitant]
     Active Substance: METFORMIN HYDROCHLORIDE
  13. BYETTA [Concomitant]
     Active Substance: EXENATIDE
  14. ZOCOR [Concomitant]
     Active Substance: SIMVASTATIN
  15. LISINOPRIL. [Concomitant]
     Active Substance: LISINOPRIL

REACTIONS (2)
  - Constipation [Unknown]
  - Ear discomfort [Unknown]
